FAERS Safety Report 17810420 (Version 2)
Quarter: 2020Q2

REPORT INFORMATION
  Report Type: Report from Study
  Country: US (occurrence: US)
  Receive Date: 20200521
  Receipt Date: 20200623
  Transmission Date: 20200714
  Serious: Yes (Death, Hospitalization)
  Sender: FDA-Public Use
  Company Number: US-BIOVITRUM-2020US2345

PATIENT
  Age: 73 Year
  Sex: Female

DRUGS (3)
  1. LORATADINE. [Concomitant]
     Active Substance: LORATADINE
     Indication: HYPERSENSITIVITY
     Route: 048
     Dates: start: 20200406, end: 20200506
  2. ANAKINRA [Suspect]
     Active Substance: ANAKINRA
     Indication: LYMPHOCYTE ADOPTIVE THERAPY
     Route: 058
     Dates: start: 20200327, end: 20200406
  3. POTASSIUM CHLORIDE. [Concomitant]
     Active Substance: POTASSIUM CHLORIDE
     Indication: HYPOCALCAEMIA
     Route: 048
     Dates: start: 20200406, end: 20200506

REACTIONS (1)
  - COVID-19 [Fatal]

NARRATIVE: CASE EVENT DATE: 20200506
